FAERS Safety Report 5826252-9 (Version None)
Quarter: 2008Q3

REPORT INFORMATION
  Report Type: 
  Country: None (occurrence: None)
  Receive Date: 20080723
  Receipt Date: 20080228
  Transmission Date: 20090109
  Serious: Yes (Life-Threatening)
  Sender: FDA-Public Use
  Company Number: 200803AGG00784

PATIENT
  Age: 79 Year
  Sex: Male

DRUGS (6)
  1. TIROFIBAN (TIROFIBAN HCL) 248 ML [Suspect]
     Indication: ACUTE CORONARY SYNDROME
     Dosage: 248 ML QD INTRAVENOUS DRIP
     Route: 041
     Dates: start: 20080224, end: 20080224
  2. OMEPRAZOLE (TO UNKNOWN) [Concomitant]
  3. HEPARINE /00027701/ (TO UNKNOWN) [Concomitant]
  4. NITROGLYCERIN (TO UNKNOWN) [Concomitant]
  5. SEACOR (TO UNKNOWN) [Concomitant]
  6. PLAVIX /01220702/ (TO UNKNOWN) [Concomitant]

REACTIONS (2)
  - ACUTE CORONARY SYNDROME [None]
  - PLATELET COUNT DECREASED [None]
